FAERS Safety Report 5529673-7 (Version None)
Quarter: 2007Q4

REPORT INFORMATION
  Report Type: 
  Country: None (occurrence: None)
  Receive Date: 20071127
  Receipt Date: 20071113
  Transmission Date: 20080405
  Serious: Yes (Hospitalization)
  Sender: FDA-Public Use
  Company Number: 2006BI015302

PATIENT
  Age: 26 Year
  Sex: Female
  Weight: 79.8331 kg

DRUGS (5)
  1. AVONEX [Suspect]
     Indication: MULTIPLE SCLEROSIS
     Dosage: 30 UG; QW; IM; 30 UG; QW; IM
     Route: 030
     Dates: start: 20030101, end: 20051001
  2. AVONEX [Suspect]
     Indication: MULTIPLE SCLEROSIS
     Dosage: 30 UG; QW; IM; 30 UG; QW; IM
     Route: 030
     Dates: start: 20060501
  3. COPAXONE [Concomitant]
  4. ZYRTEC [Concomitant]
  5. PRILOSEC [Concomitant]

REACTIONS (9)
  - ABDOMINAL PAIN LOWER [None]
  - CAESAREAN SECTION [None]
  - DRUG EXPOSURE DURING PREGNANCY [None]
  - HAEMORRHAGE [None]
  - INJECTION SITE BRUISING [None]
  - MEMORY IMPAIRMENT [None]
  - MENSTRUATION DELAYED [None]
  - PREGNANCY [None]
  - VAGINAL HAEMORRHAGE [None]
